FAERS Safety Report 11100230 (Version 1)
Quarter: 2015Q2

REPORT INFORMATION
  Report Type: Spontaneous
  Country: US (occurrence: None)
  Receive Date: 20150507
  Receipt Date: 20150507
  Transmission Date: 20150821
  Serious: No
  Sender: FDA-Public Use
  Company Number: None

PATIENT
  Age: 28 Year
  Sex: Female
  Weight: 52.16 kg

DRUGS (1)
  1. ADDERALL [Suspect]
     Active Substance: AMPHETAMINE ASPARTATE\AMPHETAMINE SULFATE\DEXTROAMPHETAMINE SACCHARATE\DEXTROAMPHETAMINE SULFATE
     Indication: ATTENTION DEFICIT/HYPERACTIVITY DISORDER
     Dosage: 1 PILL, TWICE DAILY, TAKEN BY MOUTH
     Route: 048
     Dates: start: 20150401, end: 20150506

REACTIONS (15)
  - Product quality issue [None]
  - Tremor [None]
  - Fatigue [None]
  - Product substitution issue [None]
  - Attention deficit/hyperactivity disorder [None]
  - Dizziness [None]
  - Product taste abnormal [None]
  - Product formulation issue [None]
  - Condition aggravated [None]
  - Malaise [None]
  - Dry mouth [None]
  - Bruxism [None]
  - Feeling jittery [None]
  - Drug ineffective [None]
  - Disturbance in attention [None]

NARRATIVE: CASE EVENT DATE: 20150503
